FAERS Safety Report 21844072 (Version 1)
Quarter: 2023Q1

REPORT INFORMATION
  Report Type: Spontaneous
  Country: US (occurrence: US)
  Receive Date: 20230110
  Receipt Date: 20230110
  Transmission Date: 20230418
  Serious: No
  Sender: FDA-Public Use
  Company Number: US-BoehringerIngelheim-2023-BI-211905

PATIENT
  Sex: Male

DRUGS (1)
  1. SPIRIVA RESPIMAT [Suspect]
     Active Substance: TIOTROPIUM BROMIDE
     Indication: Pulmonary embolism
     Dosage: 2 PUFFS

REACTIONS (3)
  - Wheezing [Unknown]
  - Dyspnoea [Unknown]
  - Intentional product use issue [Unknown]
